FAERS Safety Report 5011904-3 (Version None)
Quarter: 2006Q2

REPORT INFORMATION
  Report Type: 
  Country: None (occurrence: None)
  Receive Date: 20060526
  Receipt Date: 20060517
  Transmission Date: 20061013
  Serious: Yes (Other)
  Sender: FDA-Public Use
  Company Number: GB-BRISTOL-MYERS SQUIBB COMPANY-13382049

PATIENT
  Age: 23 Year
  Sex: Male

DRUGS (1)
  1. ABILIFY [Suspect]
     Indication: SCHIZOPHRENIA, PARANOID TYPE
     Dosage: 15 MG AND 7.5 MG
     Route: 048
     Dates: start: 20060331

REACTIONS (2)
  - LOSS OF CONSCIOUSNESS [None]
  - URINARY RETENTION [None]
